FAERS Safety Report 7583064-6 (Version None)
Quarter: 2011Q2

REPORT INFORMATION
  Report Type: 
  Country: None (occurrence: None)
  Receive Date: 20110527
  Receipt Date: 20101007
  Transmission Date: 20111010
  Serious: Yes (Hospitalization, Other)
  Sender: FDA-Public Use
  Company Number: US201004000720

PATIENT
  Age: 72 Year
  Sex: Female
  Weight: 117.5 kg

DRUGS (8)
  1. ATENOLOL [Concomitant]
  2. EXENATIDE PEN (EXENATIDE PEN) [Concomitant]
  3. GLIMEPIRIDE [Concomitant]
  4. BYETTA [Suspect]
     Dates: start: 20050101, end: 20080401
  5. NOVOLOG [Concomitant]
  6. LANTUS [Concomitant]
  7. VYTORIN [Concomitant]
  8. BUMETANIDE [Concomitant]

REACTIONS (2)
  - OFF LABEL USE [None]
  - PANCREATITIS [None]
